FAERS Safety Report 19446771 (Version 1)
Quarter: 2021Q2

REPORT INFORMATION
  Report Type: Spontaneous
  Country: US (occurrence: US)
  Receive Date: 20210620
  Receipt Date: 20210620
  Transmission Date: 20210717
  Serious: No
  Sender: FDA-Public Use
  Company Number: None

PATIENT
  Age: 50 Year
  Sex: Female
  Weight: 111.15 kg

DRUGS (9)
  1. PROGESTERONE MINI [Concomitant]
  2. MEXALOCAN [Concomitant]
  3. ESTROGEN [Concomitant]
     Active Substance: ESTROGENS
  4. MULTIVITAMIN FOR OVER 50, D3 [Concomitant]
  5. LYRICA [Suspect]
     Active Substance: PREGABALIN
     Indication: FIBROMYALGIA
     Route: 048
  6. PROZAC [Concomitant]
     Active Substance: FLUOXETINE HYDROCHLORIDE
  7. TINDIZINE [Concomitant]
  8. LAMICTAL [Concomitant]
     Active Substance: LAMOTRIGINE
  9. LYRICA [Concomitant]
     Active Substance: PREGABALIN

REACTIONS (9)
  - Weight increased [None]
  - Feeling abnormal [None]
  - Adverse drug reaction [None]
  - Abnormal dreams [None]
  - Fatigue [None]
  - Vision blurred [None]
  - Aphasia [None]
  - Fall [None]
  - Amnesia [None]
